FAERS Safety Report 10758807 (Version 13)
Quarter: 2022Q1

REPORT INFORMATION
  Report Type: Spontaneous
  Country: US (occurrence: US)
  Receive Date: 20150203
  Receipt Date: 20220324
  Transmission Date: 20220424
  Serious: Yes (Hospitalization)
  Sender: FDA-Public Use
  Company Number: US-PFIZER INC-2015038990

PATIENT
  Age: 72 Year
  Sex: Female
  Weight: 59 kg

DRUGS (8)
  1. PREMPRO [Suspect]
     Active Substance: ESTROGENS, CONJUGATED\MEDROXYPROGESTERONE ACETATE
     Indication: Hormone replacement therapy
     Dosage: 0.625 MG/2.5 MG, 1X/DAY
     Route: 048
     Dates: start: 2012
  2. PREMPRO [Suspect]
     Active Substance: ESTROGENS, CONJUGATED\MEDROXYPROGESTERONE ACETATE
     Indication: Osteoporosis
     Dosage: 0.625 MG/2.5 MG, 1X/DAY
     Route: 048
     Dates: end: 201502
  3. PREMPRO [Suspect]
     Active Substance: ESTROGENS, CONJUGATED\MEDROXYPROGESTERONE ACETATE
     Indication: Bone disorder
     Dosage: 0.625 MG/2.5 MG, 1X/DAY
     Route: 048
     Dates: end: 20150505
  4. PREMPRO [Suspect]
     Active Substance: ESTROGENS, CONJUGATED\MEDROXYPROGESTERONE ACETATE
     Indication: Bone density abnormal
     Dosage: 0.625 MG-5 MG TABLET, 1X/DAY
     Route: 048
  5. PREMPRO [Suspect]
     Active Substance: ESTROGENS, CONJUGATED\MEDROXYPROGESTERONE ACETATE
     Dosage: DAILY, (0.625MG/2.5MG TABLET, ONCE DAILY BY MOUTH)
     Route: 048
  6. TYLENOL [Concomitant]
     Active Substance: ACETAMINOPHEN
     Indication: Arthritis
     Dosage: 1 DF (1 TABLET UP TO 3X/DAY), AS NEEDED
     Route: 048
     Dates: start: 2011
  7. TYLENOL [Concomitant]
     Active Substance: ACETAMINOPHEN
     Indication: Back pain
  8. XANAX [Concomitant]
     Active Substance: ALPRAZOLAM
     Indication: Panic attack
     Dosage: 1 DF (1 TABLET EVERY 6 HOURS), AS NEEDED
     Route: 048
     Dates: start: 2007

REACTIONS (26)
  - Babesiosis [Recovering/Resolving]
  - Pyrexia [Recovered/Resolved]
  - Dizziness [Recovered/Resolved]
  - Nausea [Recovered/Resolved]
  - Vomiting [Recovered/Resolved]
  - Palpitations [Recovered/Resolved]
  - Asthenia [Unknown]
  - Feeling jittery [Recovered/Resolved]
  - Headache [Recovered/Resolved]
  - Feeling abnormal [Recovered/Resolved]
  - Malaise [Unknown]
  - Back pain [Recovered/Resolved]
  - Condition aggravated [Recovered/Resolved]
  - Therapeutic response unexpected [Unknown]
  - Withdrawal syndrome [Unknown]
  - Fall [Unknown]
  - Pain [Unknown]
  - Anxiety [Unknown]
  - Nervousness [Unknown]
  - Dizziness [Recovered/Resolved]
  - Feeling abnormal [Unknown]
  - Arthralgia [Unknown]
  - Body height decreased [Unknown]
  - Hormone level abnormal [Unknown]
  - Menopause [Unknown]
  - Bone disorder [Unknown]

NARRATIVE: CASE EVENT DATE: 20150101
